FAERS Safety Report 7113392-X (Version None)
Quarter: 2010Q4

REPORT INFORMATION
  Report Type: 
  Country: None (occurrence: None)
  Receive Date: 20101119
  Receipt Date: 20101116
  Transmission Date: 20110411
  Serious: Yes (Death, Hospitalization, Disabling)
  Sender: FDA-Public Use
  Company Number: PHHY2010JP44881

PATIENT
  Sex: Female
  Weight: 52 kg

DRUGS (26)
  1. AFINITOR [Suspect]
     Indication: METASTATIC RENAL CELL CARCINOMA
     Dosage: 10 MG DAILY
     Route: 048
     Dates: start: 20100604, end: 20100628
  2. BLOPRESS [Concomitant]
     Dosage: 12 MG, UNK
     Route: 048
     Dates: end: 20100705
  3. LOXONIN [Concomitant]
     Indication: METASTATIC RENAL CELL CARCINOMA
     Dosage: 180 MG, UNK
     Route: 048
     Dates: start: 20100517, end: 20100705
  4. INTERFERON ALFA [Concomitant]
     Dosage: 3000000IU
     Route: 048
     Dates: start: 20081217, end: 20100605
  5. DIHYDROCODEINE BITARTRATE INJ [Concomitant]
     Indication: METASTATIC RENAL CELL CARCINOMA
     Dosage: 3 G
     Route: 048
     Dates: start: 20100511
  6. DECADRON [Concomitant]
     Dosage: 2 MG, UNK
     Route: 048
     Dates: start: 20100513
  7. ALLELOCK [Concomitant]
     Dosage: 5 MG, UNK
     Route: 048
  8. LUPRAC [Concomitant]
     Dosage: 8 MG, UNK
     Route: 048
  9. OPALMON [Concomitant]
     Dosage: 10 UG, UNK
     Route: 048
  10. OXYCONTIN [Concomitant]
     Indication: METASTATIC RENAL CELL CARCINOMA
     Dosage: 10 MG, UNK
     Route: 048
     Dates: start: 20100517
  11. GLUFAST [Concomitant]
     Dosage: 30 MG, UNK
     Route: 048
     Dates: start: 20100601, end: 20100621
  12. SEIBULE [Concomitant]
     Dosage: 150 MG, UNK
     Route: 048
     Dates: start: 20100612
  13. SORAFENIB TOSILATE [Concomitant]
     Dosage: 800 MG, UNK
     Route: 048
     Dates: start: 20090724, end: 20090804
  14. NOVAMIN [Concomitant]
     Indication: METASTATIC RENAL CELL CARCINOMA
     Dosage: 15 MG, UNK
     Dates: start: 20100517, end: 20100524
  15. MAGMITT [Concomitant]
     Route: 048
  16. ADALAT CC [Concomitant]
     Route: 048
  17. MYSLEE [Concomitant]
     Route: 048
  18. LASIX [Concomitant]
     Route: 048
  19. MUCOSTA [Concomitant]
     Route: 048
  20. OXYNORM [Concomitant]
     Indication: METASTATIC RENAL CELL CARCINOMA
     Dosage: 2.5 MG, UNK
     Route: 048
     Dates: start: 20100615, end: 20100705
  21. ALLOID [Concomitant]
     Indication: METASTATIC RENAL CELL CARCINOMA
     Dosage: 60 ML, UNK
     Route: 048
     Dates: start: 20100615, end: 20100705
  22. MORPHINE HYDROCHLORIDE [Concomitant]
     Indication: METASTATIC RENAL CELL CARCINOMA
     Dosage: 10 MG, UNK
     Dates: start: 20100709, end: 20100721
  23. FLURBIPROFEN [Concomitant]
     Indication: METASTATIC RENAL CELL CARCINOMA
     Dosage: 100 MG, UNK
     Dates: start: 20100709, end: 20100721
  24. MIDAZOLAM HCL [Concomitant]
     Indication: METASTATIC RENAL CELL CARCINOMA
     Dosage: 50 MG, UNK
     Dates: start: 20100713
  25. SUNITINIB MALATE [Concomitant]
     Dosage: 25 MG, UNK
     Route: 048
     Dates: start: 20091110, end: 20100427
  26. TECELEUKIN [Concomitant]
     Dosage: 700000 IU, UNK
     Dates: start: 20090817, end: 20091028

REACTIONS (2)
  - INTERSTITIAL LUNG DISEASE [None]
  - RESPIRATORY DISORDER [None]
